FAERS Safety Report 21227031 (Version 1)
Quarter: 2022Q3

REPORT INFORMATION
  Report Type: Spontaneous
  Country: US (occurrence: US)
  Receive Date: 20220818
  Receipt Date: 20220818
  Transmission Date: 20221027
  Serious: No
  Sender: FDA-Public Use
  Company Number: US-GLAXOSMITHKLINE-USCH2022AMR028590

PATIENT

DRUGS (4)
  1. IBUPROFEN [Suspect]
     Active Substance: IBUPROFEN
     Indication: Product used for unknown indication
     Dosage: UNK, QD (DAILY)
  2. AJOVY [Suspect]
     Active Substance: FREMANEZUMAB-VFRM
     Indication: Product used for unknown indication
     Dosage: UNK (MONTHLY)
  3. RELPAX [Suspect]
     Active Substance: ELETRIPTAN HYDROBROMIDE
     Indication: Product used for unknown indication
     Dosage: UNK
  4. RIZATRIPTAN [Suspect]
     Active Substance: RIZATRIPTAN
     Indication: Migraine
     Dosage: UNK

REACTIONS (1)
  - Impaired work ability [Unknown]
